FAERS Safety Report 13438252 (Version 3)
Quarter: 2017Q2

REPORT INFORMATION
  Report Type: Spontaneous
  Country: BG (occurrence: BG)
  Receive Date: 20170413
  Receipt Date: 20170501
  Transmission Date: 20170830
  Serious: Yes (Death, Other)
  Sender: FDA-Public Use
  Company Number: BG-BAYER-2017-064583

PATIENT
  Age: 66 Year
  Sex: Male

DRUGS (2)
  1. METFORMIN [Concomitant]
     Active Substance: METFORMIN HYDROCHLORIDE
     Indication: TYPE 2 DIABETES MELLITUS
  2. NEXAVAR [Suspect]
     Active Substance: SORAFENIB
     Indication: HEPATOCELLULAR CARCINOMA
     Dosage: 400 MG, BID
     Dates: start: 201608, end: 20170310

REACTIONS (11)
  - Fatigue [None]
  - Hepatocellular carcinoma [Fatal]
  - General physical health deterioration [None]
  - Vomiting [Not Recovered/Not Resolved]
  - Red blood cell count decreased [None]
  - Neoplasm skin [Not Recovered/Not Resolved]
  - Metastases to bone [None]
  - Headache [None]
  - Weight decreased [None]
  - Dysphagia [Not Recovered/Not Resolved]
  - Decreased appetite [None]

NARRATIVE: CASE EVENT DATE: 2016
